FAERS Safety Report 5200354-2 (Version None)
Quarter: 2006Q4

REPORT INFORMATION
  Report Type: 
  Country: None (occurrence: None)
  Receive Date: 20061016
  Receipt Date: 20060718
  Transmission Date: 20070319
  Serious: No
  Sender: FDA-Public Use
  Company Number: 2006SP002738

PATIENT
  Age: 57 Year
  Sex: Female
  Weight: 76.2043 kg

DRUGS (6)
  1. LUNESTA [Suspect]
     Indication: INSOMNIA
     Dosage: 2 MG;HS;ORAL
     Route: 048
     Dates: start: 20060315, end: 20060714
  2. NEURONTIN [Concomitant]
  3. LISINOPRIL [Concomitant]
  4. LEXAPRO [Concomitant]
  5. VITAMIN CAP [Concomitant]
  6. IRON [Concomitant]

REACTIONS (1)
  - EYE PAIN [None]
